FAERS Safety Report 7650134-3 (Version None)
Quarter: 2011Q3

REPORT INFORMATION
  Report Type: 
  Country: None (occurrence: None)
  Receive Date: 20110802
  Receipt Date: 20110720
  Transmission Date: 20111222
  Serious: Yes (Other)
  Sender: FDA-Public Use
  Company Number: US-ROCHE-754160

PATIENT
  Sex: Male
  Weight: 61.2 kg

DRUGS (3)
  1. ACCUTANE [Suspect]
     Dosage: DOSE: 20 MG QAM AND 40 MG QPM
     Route: 048
     Dates: start: 20040226
  2. AMNESTEEM [Suspect]
     Indication: ACNE
     Route: 065
     Dates: start: 20030922, end: 20040201
  3. ACCUTANE [Suspect]
     Indication: ACNE
     Route: 048
     Dates: start: 20030822, end: 20040129

REACTIONS (5)
  - INFLAMMATORY BOWEL DISEASE [None]
  - CROHN'S DISEASE [None]
  - PANIC ATTACK [None]
  - DEPRESSION [None]
  - INTESTINAL HAEMORRHAGE [None]
